FAERS Safety Report 21962504 (Version 1)
Quarter: 2023Q1

REPORT INFORMATION
  Report Type: Spontaneous
  Country: ES (occurrence: ES)
  Receive Date: 20230207
  Receipt Date: 20230207
  Transmission Date: 20230418
  Serious: Yes (Hospitalization, Other)
  Sender: FDA-Public Use
  Company Number: ES-CELLTRION HEALTHCARE HUNGARY KFT-2023ES000173

PATIENT
  Age: 69 Year
  Sex: Male
  Weight: 59.65 kg

DRUGS (4)
  1. LENALIDOMIDE [Suspect]
     Active Substance: LENALIDOMIDE
     Indication: Marginal zone lymphoma
     Dosage: 40MG,LAST DOSE PRIOR TO SERIOUS AE TAKEN 17NOV2022
     Route: 065
     Dates: start: 20220922
  2. TAFASITAMAB [Suspect]
     Active Substance: TAFASITAMAB
     Indication: Marginal zone lymphoma
     Dosage: 768MG,LAST DOSE PRIOR TO SAE TAKEN ON 17NOV2022
     Route: 042
     Dates: start: 20220922
  3. RITUXIMAB [Suspect]
     Active Substance: RITUXIMAB
     Indication: Marginal zone lymphoma
     Dosage: 660 MILLIGRAM
     Route: 042
     Dates: start: 20220922
  4. RITUXIMAB [Suspect]
     Active Substance: RITUXIMAB
     Dosage: 600 MILLIGRAM (LAST DOSE PRIOR TO SERIOUS ADVERSE EVENT WAS TAKEN ON 17 NOV 2022)
     Route: 042
     Dates: start: 20220922

REACTIONS (4)
  - Respiratory failure [Unknown]
  - Lower respiratory tract infection [Recovered/Resolved]
  - Atypical pneumonia [Unknown]
  - Off label use [Unknown]

NARRATIVE: CASE EVENT DATE: 20221129
